FAERS Safety Report 7119622-2 (Version None)
Quarter: 2010Q4

REPORT INFORMATION
  Report Type: 
  Country: None (occurrence: None)
  Receive Date: 20101123
  Receipt Date: 20101109
  Transmission Date: 20110411
  Serious: Yes (Hospitalization)
  Sender: FDA-Public Use
  Company Number: PHHY2010LB75867

PATIENT
  Age: 69 Year
  Sex: Female

DRUGS (1)
  1. DICLOFENAC SODIUM [Suspect]
     Indication: MIGRAINE

REACTIONS (22)
  - ABDOMINAL PAIN LOWER [None]
  - ABDOMINAL TENDERNESS [None]
  - BLOOD IRON INCREASED [None]
  - COLONIC STENOSIS [None]
  - DIZZINESS [None]
  - FATIGUE [None]
  - FIBROSIS [None]
  - GASTROINTESTINAL DISORDER [None]
  - HAEMATOCHEZIA [None]
  - HAEMOGLOBIN DECREASED [None]
  - HAEMORRHOIDS [None]
  - ILEOCOLOSTOMY [None]
  - INFLAMMATION [None]
  - INTESTINAL ANASTOMOSIS [None]
  - IRON BINDING CAPACITY TOTAL DECREASED [None]
  - LARGE INTESTINAL ULCER [None]
  - LYMPHADENOPATHY [None]
  - OEDEMA [None]
  - OEDEMA MUCOSAL [None]
  - PURULENT DISCHARGE [None]
  - TRANSFERRIN SATURATION [None]
  - WEIGHT DECREASED [None]
